FAERS Safety Report 6279515-X (Version None)
Quarter: 2009Q3

REPORT INFORMATION
  Report Type: 
  Country: None (occurrence: None)
  Receive Date: 20090721
  Receipt Date: 20090703
  Transmission Date: 20100115
  Serious: Yes (Death)
  Sender: FDA-Public Use
  Company Number: POMP-1000652

PATIENT
  Age: 63 Year
  Sex: Male
  Weight: 90 kg

DRUGS (1)
  1. MYOZYME [Suspect]
     Indication: GLYCOGEN STORAGE DISEASE TYPE II
     Dosage: 1800, Q2W, INTRAVENOUS
     Route: 042

REACTIONS (2)
  - NEUROENDOCRINE TUMOUR [None]
  - RESPIRATORY ARREST [None]
